APPROVED DRUG PRODUCT: AMANTADINE HYDROCHLORIDE
Active Ingredient: AMANTADINE HYDROCHLORIDE
Strength: 100MG
Dosage Form/Route: TABLET;ORAL
Application: A210215 | Product #001 | TE Code: AB
Applicant: ATHEM HOLDINGS LLC
Approved: Mar 10, 2020 | RLD: No | RS: No | Type: RX